FAERS Safety Report 5898370-0 (Version None)
Quarter: 2008Q3

REPORT INFORMATION
  Report Type: 
  Country: None (occurrence: None)
  Receive Date: 20080925
  Receipt Date: 20071010
  Transmission Date: 20090109
  Serious: No
  Sender: FDA-Public Use
  Company Number: A0685925A

PATIENT
  Age: 33 Year
  Sex: Female

DRUGS (7)
  1. WELLBUTRIN XL [Suspect]
     Indication: ELECTROLYTE IMBALANCE
     Dosage: 150MG PER DAY
     Route: 048
     Dates: start: 20070926, end: 20070929
  2. VOLTAREN [Concomitant]
  3. LEXAPRO [Concomitant]
  4. BENADRYL [Concomitant]
  5. VITAMIN TAB [Concomitant]
  6. ORTHO TRI-CYCLEN [Concomitant]
  7. CALCIUM GLUCONATE [Concomitant]

REACTIONS (4)
  - FATIGUE [None]
  - HYPERSENSITIVITY [None]
  - LIP SWELLING [None]
  - PARAESTHESIA ORAL [None]
